FAERS Safety Report 6183045-3 (Version None)
Quarter: 2009Q2

REPORT INFORMATION
  Report Type: 
  Country: None (occurrence: None)
  Receive Date: 20090507
  Receipt Date: 20090428
  Transmission Date: 20091009
  Serious: Yes (Hospitalization)
  Sender: FDA-Public Use
  Company Number: CH-AVENTIS-200914230GDDC

PATIENT
  Age: 45 Year
  Sex: Male

DRUGS (2)
  1. TAXOTERE [Suspect]
     Route: 042
     Dates: start: 20090401, end: 20090416
  2. CETUXIMAB [Suspect]
     Route: 042
     Dates: start: 20090401, end: 20090416

REACTIONS (1)
  - BRAIN COMPRESSION [None]
